FAERS Safety Report 4524465-X (Version None)
Quarter: 2004Q4

REPORT INFORMATION
  Report Type: 
  Country: None (occurrence: None)
  Receive Date: 20041116
  Receipt Date: 20040601
  Transmission Date: 20050328
  Serious: Yes (Other)
  Sender: FDA-Public Use
  Company Number: HQWYE172602JUN04

PATIENT
  Age: 69 Year
  Sex: Female
  Weight: 63.56 kg

DRUGS (7)
  1. INDERAL [Suspect]
     Indication: ESSENTIAL TREMOR
     Dosage: 1/2 OF 40 MG TABLET 2-3 TIMES DAILY, ORAL; SEE IMAGE
     Route: 048
     Dates: start: 19970101, end: 20040501
  2. INDERAL [Suspect]
     Indication: ESSENTIAL TREMOR
     Dosage: 1/2 OF 40 MG TABLET 2-3 TIMES DAILY, ORAL; SEE IMAGE
     Route: 048
     Dates: start: 20040501, end: 20040501
  3. INDERAL [Suspect]
     Indication: ESSENTIAL TREMOR
     Dosage: 1/2 OF 40 MG TABLET 2-3 TIMES DAILY, ORAL; SEE IMAGE
     Route: 048
     Dates: start: 20040501, end: 20040501
  4. INDERAL [Suspect]
     Indication: ESSENTIAL TREMOR
     Dosage: 1/2 OF 40 MG TABLET 2-3 TIMES DAILY, ORAL; SEE IMAGE
     Route: 048
     Dates: start: 20040501, end: 20040501
  5. ZOCOR [Concomitant]
  6. ASPIRIN [Concomitant]
  7. ACTONEL [Concomitant]

REACTIONS (3)
  - BLOOD PRESSURE DECREASED [None]
  - COLITIS ISCHAEMIC [None]
  - RASH [None]
